FAERS Safety Report 5283688-5 (Version None)
Quarter: 2007Q2

REPORT INFORMATION
  Report Type: 
  Country: None (occurrence: None)
  Receive Date: 20070402
  Receipt Date: 20070321
  Transmission Date: 20071010
  Serious: Yes (Hospitalization)
  Sender: FDA-Public Use
  Company Number: GR-SANOFI-SYNTHELABO-A01200702985

PATIENT
  Age: 60 Year
  Sex: Male

DRUGS (2)
  1. XATRAL [Suspect]
     Indication: DRUG USE FOR UNKNOWN INDICATION
     Dosage: UNK
     Route: 048
     Dates: start: 20021201, end: 20030201
  2. XATRAL [Suspect]
     Dosage: UNK
     Route: 048
     Dates: start: 20070101, end: 20070201

REACTIONS (1)
  - PANCREATITIS [None]
